FAERS Safety Report 14816431 (Version 1)
Quarter: 2018Q2

REPORT INFORMATION
  Report Type: Spontaneous
  Country: GB (occurrence: GB)
  Receive Date: 20180426
  Receipt Date: 20180426
  Transmission Date: 20180711
  Serious: Yes (Other)
  Sender: FDA-Public Use
  Company Number: GB-TEVA-2018-GB-886268

PATIENT
  Age: 38 Year
  Sex: Female
  Weight: 64 kg

DRUGS (4)
  1. KETOCONAZOLE. [Concomitant]
     Active Substance: KETOCONAZOLE
     Route: 065
     Dates: start: 20180115
  2. TRIMETHOPRIM. [Suspect]
     Active Substance: TRIMETHOPRIM
     Indication: URINARY TRACT INFECTION
     Route: 048
     Dates: start: 20180216, end: 20180217
  3. DIAZEPAM. [Concomitant]
     Active Substance: DIAZEPAM
     Dosage: USE FOR SHORT PERIODS AT LOWEST DOSE THAT CAN C...
     Route: 065
     Dates: start: 20171218, end: 20180115
  4. SODIUM CROMOGLICATE [Concomitant]
     Active Substance: CROMOLYN SODIUM
     Dosage: 6 DOSAGE FORMS DAILY;
     Route: 065
     Dates: start: 20171124

REACTIONS (1)
  - Urticaria [Recovered/Resolved]

NARRATIVE: CASE EVENT DATE: 20180216
